FAERS Safety Report 8182769-6 (Version None)
Quarter: 2012Q1

REPORT INFORMATION
  Report Type: 
  Country: None (occurrence: None)
  Receive Date: 20120305
  Receipt Date: 20120224
  Transmission Date: 20120608
  Serious: Yes (Other)
  Sender: FDA-Public Use
  Company Number: US-BAYER-2012-018980

PATIENT

DRUGS (2)
  1. YASMIN [Suspect]
     Dosage: UNK
     Dates: start: 20091103
  2. YAZ [Suspect]
     Dosage: UNK
     Dates: start: 20091103

REACTIONS (3)
  - CHOLECYSTECTOMY [None]
  - INJURY [None]
  - PAIN [None]
